FAERS Safety Report 15802755 (Version 3)
Quarter: 2019Q1

REPORT INFORMATION
  Report Type: Spontaneous
  Country: IT (occurrence: IT)
  Receive Date: 20190109
  Receipt Date: 20190109
  Transmission Date: 20190417
  Serious: Yes (Other)
  Sender: FDA-Public Use
  Company Number: PHHY2019IT002346

PATIENT
  Age: 61 Year
  Sex: Female

DRUGS (1)
  1. TOBRAMYCIN. [Suspect]
     Active Substance: TOBRAMYCIN
     Indication: CONJUNCTIVITIS
     Dosage: 1 DF, (1 UG/LITRE)
     Route: 047

REACTIONS (1)
  - Periorbital oedema [Recovered/Resolved]

NARRATIVE: CASE EVENT DATE: 20181228
